FAERS Safety Report 21016600 (Version 1)
Quarter: 2022Q2

REPORT INFORMATION
  Report Type: Spontaneous
  Country: DE (occurrence: DE)
  Receive Date: 20220628
  Receipt Date: 20220628
  Transmission Date: 20220721
  Serious: Yes (Death, Other)
  Sender: FDA-Public Use
  Company Number: DE-BoehringerIngelheim-2022-BI-178259

PATIENT
  Age: 50 Year
  Sex: Female

DRUGS (1)
  1. AFATINIB [Suspect]
     Active Substance: AFATINIB
     Indication: Adenocarcinoma
     Dates: start: 202011, end: 202108

REACTIONS (3)
  - Death [Fatal]
  - Metastases to central nervous system [Unknown]
  - Diarrhoea [Unknown]
